FAERS Safety Report 11111423 (Version 2)
Quarter: 2015Q2

REPORT INFORMATION
  Report Type: Spontaneous
  Country: US (occurrence: US)
  Receive Date: 20150513
  Receipt Date: 20150514
  Transmission Date: 20150821
  Serious: Yes (Other)
  Sender: FDA-Public Use
  Company Number: US-ABBVIE-12P-163-0958495-00

PATIENT
  Age: 39 Year
  Sex: Female
  Weight: 49.94 kg

DRUGS (3)
  1. DEPO-PROVERA [Concomitant]
     Active Substance: MEDROXYPROGESTERONE ACETATE
     Indication: PRODUCT USED FOR UNKNOWN INDICATION
     Dosage: SUSP #1 X 3
     Route: 065
     Dates: start: 20111016
  2. LUPRON DEPOT [Suspect]
     Active Substance: LEUPROLIDE ACETATE
     Indication: UTERINE LEIOMYOMA
  3. LUPRON DEPOT [Suspect]
     Active Substance: LEUPROLIDE ACETATE
     Indication: ENDOMETRIOSIS
     Route: 030
     Dates: start: 201111, end: 20120330

REACTIONS (12)
  - Arthralgia [Unknown]
  - Economic problem [Recovering/Resolving]
  - Back pain [Unknown]
  - Osteopenia [Unknown]
  - Menorrhagia [Not Recovered/Not Resolved]
  - Activities of daily living impaired [Unknown]
  - Osteoporosis [Not Recovered/Not Resolved]
  - Emotional distress [Unknown]
  - Quality of life decreased [Unknown]
  - Bone pain [Unknown]
  - Depression [Unknown]
  - Impaired work ability [Unknown]

NARRATIVE: CASE EVENT DATE: 201206
